FAERS Safety Report 12445787 (Version 1)
Quarter: 2016Q2

REPORT INFORMATION
  Report Type: Spontaneous
  Country: US (occurrence: US)
  Receive Date: 20160608
  Receipt Date: 20160608
  Transmission Date: 20160815
  Serious: No
  Sender: FDA-Public Use
  Company Number: US-JNJFOC-20160513401

PATIENT
  Age: 62 Year
  Sex: Male
  Weight: 86.18 kg

DRUGS (2)
  1. TYLENOL 8 HR [Suspect]
     Active Substance: ACETAMINOPHEN
     Indication: PRODUCT USED FOR UNKNOWN INDICATION
     Dosage: 1 TIME
     Route: 048
     Dates: start: 20160512, end: 20160512
  2. TYLENOL 8 HR [Suspect]
     Active Substance: ACETAMINOPHEN
     Route: 048

REACTIONS (3)
  - Feeling abnormal [Recovering/Resolving]
  - Disturbance in attention [Recovering/Resolving]
  - Somnolence [Recovering/Resolving]

NARRATIVE: CASE EVENT DATE: 20160512
